FAERS Safety Report 5436952-0 (Version None)
Quarter: 2007Q3

REPORT INFORMATION
  Report Type: 
  Country: None (occurrence: None)
  Receive Date: 20070831
  Receipt Date: 20070821
  Transmission Date: 20080115
  Serious: Yes (Hospitalization)
  Sender: FDA-Public Use
  Company Number: JP-ASTRAZENECA-2007SE04322

PATIENT
  Sex: Female

DRUGS (4)
  1. CANDESARTAN CILEXETIL [Suspect]
     Indication: HYPERTENSION
     Route: 048
  2. CANDESARTAN CILEXETIL [Suspect]
     Route: 048
  3. CANDESARTAN CILEXETIL [Suspect]
     Route: 048
     Dates: end: 20070703
  4. NORVASC [Concomitant]
     Route: 048

REACTIONS (1)
  - HYPOGLYCAEMIA [None]
